FAERS Safety Report 20930692 (Version 4)
Quarter: 2022Q4

REPORT INFORMATION
  Report Type: Report from Study
  Country: TW (occurrence: TW)
  Receive Date: 20220608
  Receipt Date: 20221119
  Transmission Date: 20230112
  Serious: Yes (Hospitalization)
  Sender: FDA-Public Use
  Company Number: TW-NOVARTISPH-NVSC2022TW128835

PATIENT
  Age: 43 Year
  Sex: Male
  Weight: 100 kg

DRUGS (1)
  1. MYFORTIC [Suspect]
     Active Substance: MYCOPHENOLATE SODIUM
     Indication: Lupus nephritis
     Dosage: 1440 MG, QD
     Route: 048
     Dates: start: 20211105

REACTIONS (7)
  - Systemic lupus erythematosus [Recovered/Resolved]
  - Myalgia [Recovering/Resolving]
  - Polyarthritis [Recovering/Resolving]
  - Diarrhoea [Recovering/Resolving]
  - Dyspnoea [Recovering/Resolving]
  - Proteinuria [Recovering/Resolving]
  - Red blood cell sedimentation rate increased [Unknown]

NARRATIVE: CASE EVENT DATE: 20220527
